FAERS Safety Report 18605072 (Version 1)
Quarter: 2020Q4

REPORT INFORMATION
  Report Type: Spontaneous
  Country: US (occurrence: US)
  Receive Date: 20201210
  Receipt Date: 20201210
  Transmission Date: 20210114
  Serious: No
  Sender: FDA-Public Use
  Company Number: None

PATIENT
  Age: 70 Year
  Sex: Male

DRUGS (12)
  1. DEXAMETHASONE. [Concomitant]
     Active Substance: DEXAMETHASONE
  2. AMOXICILLIN. [Concomitant]
     Active Substance: AMOXICILLIN
  3. LOMOTIL [Concomitant]
     Active Substance: ATROPINE SULFATE\DIPHENOXYLATE HYDROCHLORIDE
  4. NINLARO [Suspect]
     Active Substance: IXAZOMIB CITRATE
     Indication: PLASMA CELL MYELOMA
     Dosage: ?          OTHER FREQUENCY:1 CAPSULE ONE TIME;?
     Route: 048
     Dates: start: 2019
  5. CLARITIN [Concomitant]
     Active Substance: LORATADINE
  6. ZITHROMAX [Concomitant]
     Active Substance: AZITHROMYCIN DIHYDRATE
  7. OMEPRAZOLE. [Concomitant]
     Active Substance: OMEPRAZOLE
  8. ACYCLOVIR. [Concomitant]
     Active Substance: ACYCLOVIR
  9. ASMANEX TWISTHALER 14 MET [Concomitant]
  10. LEVAQUIN [Concomitant]
     Active Substance: LEVOFLOXACIN
  11. MUCINEX [Concomitant]
     Active Substance: GUAIFENESIN
  12. FLUTICASONE PROPIONATE. [Concomitant]
     Active Substance: FLUTICASONE PROPIONATE

REACTIONS (1)
  - Infection [None]

NARRATIVE: CASE EVENT DATE: 20201106
